FAERS Safety Report 7522784-6 (Version None)
Quarter: 2011Q2

REPORT INFORMATION
  Report Type: 
  Country: None (occurrence: None)
  Receive Date: 20110603
  Receipt Date: 20110525
  Transmission Date: 20111010
  Serious: Yes (Hospitalization)
  Sender: FDA-Public Use
  Company Number: US-EISAI INC-E7272-00102-SPO-US

PATIENT
  Sex: Male

DRUGS (5)
  1. VINCRISTINE [Concomitant]
     Indication: PERIPHERAL T-CELL LYMPHOMA UNSPECIFIED
  2. CYCLOPHOSPHAMIDE [Concomitant]
     Indication: PERIPHERAL T-CELL LYMPHOMA UNSPECIFIED
  3. PREDNISONE [Concomitant]
     Indication: PERIPHERAL T-CELL LYMPHOMA UNSPECIFIED
  4. DOXORUBICIN HCL [Concomitant]
     Indication: PERIPHERAL T-CELL LYMPHOMA UNSPECIFIED
  5. ONTAK [Suspect]
     Indication: PERIPHERAL T-CELL LYMPHOMA UNSPECIFIED
     Dosage: UNKNOWN

REACTIONS (1)
  - PULMONARY FIBROSIS [None]
